FAERS Safety Report 4934920-6 (Version None)
Quarter: 2006Q1

REPORT INFORMATION
  Report Type: 
  Country: None (occurrence: None)
  Receive Date: 20060306
  Receipt Date: 20060306
  Transmission Date: 20060701
  Serious: No
  Sender: FDA-Public Use
  Company Number: None

PATIENT
  Sex: Female
  Weight: 68.0396 kg

DRUGS (2)
  1. ACTONEL [Suspect]
     Indication: OSTEOPOROSIS
     Dosage: DAILY
     Dates: start: 19950129, end: 20060108
  2. EVISTA [Suspect]
     Indication: OSTEOPOROSIS
     Dosage: DAILY PO
     Route: 048
     Dates: start: 19950129, end: 20060108

REACTIONS (6)
  - ARTHRALGIA [None]
  - BONE DENSITY DECREASED [None]
  - BONE PAIN [None]
  - DRUG INEFFECTIVE [None]
  - GASTRIC DISORDER [None]
  - INSOMNIA [None]
